FAERS Safety Report 15205917 (Version 1)
Quarter: 2018Q3

REPORT INFORMATION
  Report Type: Spontaneous
  Country: FR (occurrence: FR)
  Receive Date: 20180727
  Receipt Date: 20180727
  Transmission Date: 20181010
  Serious: Yes (Other)
  Sender: FDA-Public Use
  Company Number: FR-TEVA-2018-FR-930914

PATIENT
  Age: 79 Year
  Sex: Male

DRUGS (4)
  1. KEYTRUDA [Suspect]
     Active Substance: PEMBROLIZUMAB
     Indication: TRANSITIONAL CELL CARCINOMA
     Dates: start: 20180309
  2. GEMZAR [Suspect]
     Active Substance: GEMCITABINE HYDROCHLORIDE
     Indication: TRANSITIONAL CELL CARCINOMA
     Dosage: NP
     Route: 042
     Dates: start: 2017, end: 2017
  3. CARBOPLATINE [Suspect]
     Active Substance: CARBOPLATIN
     Indication: TRANSITIONAL CELL CARCINOMA
     Dosage: NP
     Route: 042
     Dates: start: 2017, end: 2017
  4. PACLITAXEL. [Suspect]
     Active Substance: PACLITAXEL
     Indication: TRANSITIONAL CELL CARCINOMA
     Dosage: NP
     Route: 042
     Dates: start: 201712, end: 201802

REACTIONS (1)
  - Squamous cell carcinoma of skin [Recovering/Resolving]

NARRATIVE: CASE EVENT DATE: 201805
